FAERS Safety Report 25439605 (Version 1)
Quarter: 2025Q2

REPORT INFORMATION
  Report Type: Spontaneous
  Country: US (occurrence: None)
  Receive Date: 20250613
  Receipt Date: 20250613
  Transmission Date: 20250716
  Serious: No
  Sender: FDA-CTU
  Company Number: None

PATIENT
  Age: 37 Year
  Sex: Female

DRUGS (6)
  1. FOLLISTIM AQ [Suspect]
     Active Substance: FOLLITROPIN
     Indication: Infertility female
     Route: 058
     Dates: start: 20250115
  2. ESTRADIOL [Concomitant]
     Active Substance: ESTRADIOL
  3. FOLLISTIM AQ [Concomitant]
     Active Substance: FOLLITROPIN
  4. GANIRELIX AC [Concomitant]
  5. LEUPROLIDE [Concomitant]
     Active Substance: LEUPROLIDE
  6. MENOPUR [Concomitant]
     Active Substance: FOLLITROPIN\LUTEINIZING HORMONE

REACTIONS (1)
  - Injection site reaction [None]

NARRATIVE: CASE EVENT DATE: 20250601
